FAERS Safety Report 6853959-7 (Version None)
Quarter: 2010Q3

REPORT INFORMATION
  Report Type: 
  Country: None (occurrence: None)
  Receive Date: 20100717
  Receipt Date: 20080131
  Transmission Date: 20110219
  Serious: No
  Sender: FDA-Public Use
  Company Number: US-PFIZER INC-2007102549

PATIENT
  Sex: Male
  Weight: 97.7 kg

DRUGS (3)
  1. CHANTIX [Suspect]
     Indication: SMOKING CESSATION THERAPY
     Dates: start: 20071126
  2. IBUPROFEN [Concomitant]
  3. CIMETIDINE [Concomitant]

REACTIONS (1)
  - MUSCULOSKELETAL PAIN [None]
